FAERS Safety Report 10022640 (Version 2)
Quarter: 2014Q1

REPORT INFORMATION
  Report Type: Spontaneous
  Country: US (occurrence: US)
  Receive Date: 20140319
  Receipt Date: 20140319
  Transmission Date: 20141002
  Serious: Yes (Other)
  Sender: FDA-Public Use
  Company Number: US-GE HEALTHCARE MEDICAL DIAGNOSTICS-OSCN-PR-0805S-0301

PATIENT
  Age: 56 Year
  Sex: Male

DRUGS (2)
  1. OMNISCAN [Suspect]
     Indication: PRODUCT USED FOR UNKNOWN INDICATION
     Route: 042
     Dates: start: 20020906, end: 20020906
  2. OMNISCAN [Suspect]
     Indication: MUSCULAR WEAKNESS
     Route: 042
     Dates: start: 20060525, end: 20060525

REACTIONS (1)
  - Nephrogenic systemic fibrosis [Not Recovered/Not Resolved]
